FAERS Safety Report 8452992-1 (Version None)
Quarter: 2012Q2

REPORT INFORMATION
  Report Type: 
  Country: None (occurrence: None)
  Receive Date: 20120620
  Receipt Date: 20120522
  Transmission Date: 20120825
  Serious: No
  Sender: FDA-Public Use
  Company Number: US-VERTEX PHARMACEUTICALS INC.-AE-2012-006440

PATIENT
  Sex: Male

DRUGS (4)
  1. PEGASYS [Concomitant]
     Indication: HEPATITIS C
     Route: 058
     Dates: start: 20120427
  2. METFORMIN HCL [Concomitant]
     Indication: DIABETES MELLITUS
  3. INCIVEK [Suspect]
     Indication: HEPATITIS C
     Route: 048
     Dates: start: 20120427
  4. RIBAPACK [Concomitant]
     Indication: HEPATITIS C
     Route: 048
     Dates: start: 20120427

REACTIONS (9)
  - EYE PAIN [None]
  - RASH [None]
  - RECTAL HAEMORRHAGE [None]
  - TREMOR [None]
  - EYE IRRITATION [None]
  - FATIGUE [None]
  - ANAL PRURITUS [None]
  - CHILLS [None]
  - FEELING COLD [None]
